FAERS Safety Report 10069421 (Version 1)
Quarter: 2014Q2

REPORT INFORMATION
  Report Type: Spontaneous
  Country: CA (occurrence: CA)
  Receive Date: 20140410
  Receipt Date: 20140410
  Transmission Date: 20141212
  Serious: Yes (Hospitalization)
  Sender: FDA-Public Use
  Company Number: CA-ROCHE-1377509

PATIENT
  Age: 41 Year
  Sex: Female

DRUGS (9)
  1. XOLAIR [Suspect]
     Indication: URTICARIA
     Route: 058
     Dates: start: 20130110
  2. NAPROXEN [Concomitant]
     Route: 065
  3. CYMBALTA [Concomitant]
     Route: 065
  4. HYDROMORPHONE [Concomitant]
     Route: 065
  5. SYMBICORT [Concomitant]
     Route: 065
  6. VENTOLIN [Concomitant]
     Route: 065
  7. PLAQUENIL [Concomitant]
     Route: 065
  8. CETIRIZINE [Concomitant]
  9. TECTA [Concomitant]

REACTIONS (5)
  - Food allergy [Unknown]
  - Anaphylactic reaction [Unknown]
  - Stomatitis [Unknown]
  - Mechanical urticaria [Unknown]
  - Off label use [Unknown]
